FAERS Safety Report 5545770-4 (Version None)
Quarter: 2007Q4

REPORT INFORMATION
  Report Type: 
  Country: None (occurrence: None)
  Receive Date: 20071207
  Receipt Date: 20071122
  Transmission Date: 20080405
  Serious: Yes (Hospitalization)
  Sender: FDA-Public Use
  Company Number: GXKR2007ES10054

PATIENT
  Age: 76 Year
  Sex: Male

DRUGS (3)
  1. SIMVASTATIN [Suspect]
     Indication: HYPERCHOLESTEROLAEMIA
  2. RISPERIDONE [Suspect]
     Indication: PSYCHOMOTOR HYPERACTIVITY
  3. INSULIN (INSULIN) [Concomitant]

REACTIONS (5)
  - BLOOD CREATININE INCREASED [None]
  - DRUG INTERACTION [None]
  - PAIN [None]
  - PSYCHOMOTOR HYPERACTIVITY [None]
  - RHABDOMYOLYSIS [None]
